FAERS Safety Report 4727606-4 (Version None)
Quarter: 2005Q3

REPORT INFORMATION
  Report Type: 
  Country: None (occurrence: None)
  Receive Date: 20050728
  Receipt Date: 20050718
  Transmission Date: 20060218
  Serious: Yes (Hospitalization)
  Sender: FDA-Public Use
  Company Number: FR-SANOFI-SYNTHELABO-A02200501992

PATIENT
  Age: 52 Year
  Sex: Male

DRUGS (5)
  1. STILNOX [Suspect]
     Indication: DRUG USE FOR UNKNOWN INDICATION
     Route: 048
     Dates: start: 20040601, end: 20050630
  2. TOPALGIC [Suspect]
     Indication: BACK PAIN
     Dosage: 150 - 300 MG QD
     Route: 048
     Dates: start: 20040601, end: 20050301
  3. TOPALGIC [Suspect]
     Route: 048
     Dates: start: 20050301, end: 20050704
  4. NORSET [Suspect]
     Indication: DRUG USE FOR UNKNOWN INDICATION
     Dosage: 7.5 - 22.5 MG QD
     Route: 048
     Dates: start: 20050601, end: 20050630
  5. ACETAMINOPHEN [Concomitant]
     Indication: DRUG USE FOR UNKNOWN INDICATION
     Route: 048
     Dates: end: 20050101

REACTIONS (1)
  - GRAND MAL CONVULSION [None]
